FAERS Safety Report 23291170 (Version 1)
Quarter: 2023Q4

REPORT INFORMATION
  Report Type: Spontaneous
  Country: IT (occurrence: IT)
  Receive Date: 20231213
  Receipt Date: 20231213
  Transmission Date: 20240110
  Serious: Yes (Other)
  Sender: FDA-Public Use
  Company Number: IT-SANDOZ-SDZ2023IT066244

PATIENT
  Age: 19 Year
  Sex: Male

DRUGS (4)
  1. BUPROPION [Suspect]
     Active Substance: BUPROPION
     Indication: Depressive symptom
     Route: 065
  2. RISPERIDONE [Suspect]
     Active Substance: RISPERIDONE
     Indication: Psychotic symptom
     Dosage: 2WEEKS, (2MG/WEEK UNTIL COMPLETE WITHDRAWAL)
     Route: 065
  3. RISPERIDONE [Suspect]
     Active Substance: RISPERIDONE
     Indication: Depressive symptom
  4. VENLAFAXINE [Suspect]
     Active Substance: VENLAFAXINE HYDROCHLORIDE
     Indication: Depressive symptom
     Route: 065

REACTIONS (12)
  - Hallucination [Unknown]
  - Suicidal ideation [Recovered/Resolved]
  - Somnolence [Unknown]
  - Bradykinesia [Unknown]
  - Akathisia [Unknown]
  - Hypotension [Unknown]
  - Depressive symptom [Recovering/Resolving]
  - Anxiety [Recovering/Resolving]
  - Blood pressure increased [Unknown]
  - Insomnia [Unknown]
  - Dizziness [Unknown]
  - Drug ineffective [Unknown]
